FAERS Safety Report 8588279 (Version 2)
Quarter: 2013Q1

REPORT INFORMATION
  Report Type: Spontaneous
  Country: ES (occurrence: ES)
  Receive Date: 20120531
  Receipt Date: 20130102
  Transmission Date: 20140127
  Serious: Yes (Other)
  Sender: FDA-Public Use
  Company Number: ES-BAYER-2012-050107

PATIENT
  Age: 50 Year
  Sex: Male

DRUGS (19)
  1. MOXIFLOXACIN ORAL [Suspect]
     Dosage: 0.2-0.3ML OF DILUTION 3 CC VIGAMOX + 3 CC
     Route: 047
     Dates: start: 20120222, end: 20120222
  2. VISCOAT [Concomitant]
  3. BSS [Concomitant]
  4. BETADINE [Concomitant]
  5. BETADINE [Concomitant]
  6. ACTOCORTINA [Concomitant]
     Dosage: 0.2-0.3 ML OF DILLUITION 3CC VIGAMOX + 3 CC ACTOCORTINA
     Route: 047
     Dates: start: 20120222, end: 20120222
  7. AMIKACINA G.I [Concomitant]
  8. BUPIVACAINA [Concomitant]
  9. LIDOCAINA [Concomitant]
  10. LIQUIFILM [Concomitant]
  11. LIQUIFILM [Concomitant]
  12. VANCOMICINA [Concomitant]
  13. CEFTAZIDIMA GI [Concomitant]
  14. OFTALAR [Concomitant]
     Dosage: 1 GTT, TID
     Route: 047
     Dates: start: 20120219, end: 20120221
  15. OFTALAR [Concomitant]
     Dosage: 1GTT 8 X/DAY
     Route: 047
     Dates: start: 20120222, end: 20120223
  16. OFTALAR [Concomitant]
     Dosage: 1 GTT, QID
     Route: 047
     Dates: start: 20120223, end: 20120227
  17. MYDRIACYL [Concomitant]
     Dosage: 1 GTT, ONCE
     Route: 047
     Dates: start: 20120222, end: 20120222
  18. TOBRADEX [Concomitant]
     Dosage: 1 GTT 8X/DAY
     Route: 047
     Dates: start: 20120222, end: 20120222
  19. TOBRADEX [Concomitant]
     Dosage: 1 GTT, QID
     Route: 047
     Dates: start: 20120223, end: 20120227

REACTIONS (7)
  - Endophthalmitis [Recovering/Resolving]
  - Retinal detachment [Recovering/Resolving]
  - Hypopyon [Recovering/Resolving]
  - Vitritis [Recovering/Resolving]
  - Corneal oedema [Recovering/Resolving]
  - Intraocular pressure increased [Recovering/Resolving]
  - Ocular hyperaemia [Unknown]
